FAERS Safety Report 24800925 (Version 1)
Quarter: 2025Q1

REPORT INFORMATION
  Report Type: Spontaneous
  Country: FR (occurrence: FR)
  Receive Date: 20250102
  Receipt Date: 20250102
  Transmission Date: 20250409
  Serious: Yes (Hospitalization, Disabling, Other)
  Sender: PFIZER
  Company Number: FR-CELLTRION INC.-2024FR031691

PATIENT
  Age: 69 Year
  Sex: Female
  Weight: 83 kg

DRUGS (9)
  1. RITUXIMAB [Suspect]
     Active Substance: RITUXIMAB
     Indication: Diffuse large B-cell lymphoma
     Dates: start: 20211006, end: 20220130
  2. DOXORUBICIN HYDROCHLORIDE [Suspect]
     Active Substance: DOXORUBICIN HYDROCHLORIDE
     Indication: Diffuse large B-cell lymphoma
     Dates: start: 20211006, end: 20220130
  3. VINCRISTINE SULFATE [Suspect]
     Active Substance: VINCRISTINE SULFATE
     Indication: Diffuse large B-cell lymphoma
     Dates: start: 20211006, end: 20220130
  4. CYCLOPHOSPHAMIDE [Suspect]
     Active Substance: CYCLOPHOSPHAMIDE
     Indication: Diffuse large B-cell lymphoma
     Dates: start: 20211006, end: 20220130
  5. PREDNISOLONE [Suspect]
     Active Substance: PREDNISOLONE
     Indication: Diffuse large B-cell lymphoma
     Dates: start: 20211006, end: 20220130
  6. TAFASITAMAB [Suspect]
     Active Substance: TAFASITAMAB
     Indication: Diffuse large B-cell lymphoma
     Dates: start: 20211005, end: 20220209
  7. LENALIDOMIDE [Suspect]
     Active Substance: LENALIDOMIDE
     Indication: Diffuse large B-cell lymphoma
     Route: 048
     Dates: start: 20211005, end: 20220204
  8. LERCANIDIPINE [Concomitant]
     Active Substance: LERCANIDIPINE
  9. ROSUVASTATINE/EZETIMIBE [Concomitant]

REACTIONS (2)
  - Second primary malignancy [Not Recovered/Not Resolved]
  - Endometrial adenocarcinoma [Not Recovered/Not Resolved]

NARRATIVE: CASE EVENT DATE: 20241021
